FAERS Safety Report 6753808-1 (Version None)
Quarter: 2010Q2

REPORT INFORMATION
  Report Type: 
  Country: None (occurrence: None)
  Receive Date: 20100603
  Receipt Date: 20100528
  Transmission Date: 20101027
  Serious: Yes (Hospitalization, Other)
  Sender: FDA-Public Use
  Company Number: CA-BAYER-201024217NA

PATIENT
  Age: 43 Year
  Sex: Female
  Weight: 73 kg

DRUGS (1)
  1. CIPRO XR [Suspect]
     Indication: DRUG USE FOR UNKNOWN INDICATION
     Dosage: TOTAL DAILY DOSE: 1000 MG  UNIT DOSE: 1000 MG
     Route: 048

REACTIONS (2)
  - CONTUSION [None]
  - IDIOPATHIC THROMBOCYTOPENIC PURPURA [None]
